FAERS Safety Report 13471761 (Version 1)
Quarter: 2017Q2

REPORT INFORMATION
  Report Type: Spontaneous
  Country: US (occurrence: US)
  Receive Date: 20170424
  Receipt Date: 20170424
  Transmission Date: 20170830
  Serious: No
  Sender: FDA-Public Use
  Company Number: US-PFIZER INC-2017175000

PATIENT
  Age: 69 Year
  Sex: Female
  Weight: 132 kg

DRUGS (2)
  1. LEVOXYL [Suspect]
     Active Substance: LEVOTHYROXINE SODIUM
     Indication: AUTOIMMUNE THYROIDITIS
     Dosage: 100MCG ONCE A DAY BY MOUTH
     Route: 048
     Dates: start: 201612, end: 201702
  2. IRBESARTAN. [Concomitant]
     Active Substance: IRBESARTAN
     Indication: HYPERTENSION
     Dosage: 150MG ONCE A DAY BY MOUTH
     Route: 048

REACTIONS (6)
  - Asthenia [Recovering/Resolving]
  - Dry skin [Recovering/Resolving]
  - Bronchitis [Unknown]
  - Pallor [Recovering/Resolving]
  - Alopecia [Recovering/Resolving]
  - Feeling cold [Recovering/Resolving]

NARRATIVE: CASE EVENT DATE: 201701
